FAERS Safety Report 10061835 (Version 1)
Quarter: 2014Q2

REPORT INFORMATION
  Report Type: Spontaneous
  Country: US (occurrence: None)
  Receive Date: 20140404
  Receipt Date: 20140404
  Transmission Date: 20141212
  Serious: Yes (Other)
  Sender: FDA-Public Use
  Company Number: None

PATIENT
  Age: 55 Year
  Sex: Female
  Weight: 65.77 kg

DRUGS (1)
  1. BUPROPION [Suspect]
     Indication: STRESS
     Route: 048
     Dates: start: 20140303, end: 20140328

REACTIONS (2)
  - Headache [None]
  - Product substitution issue [None]
